FAERS Safety Report 6111795-3 (Version None)
Quarter: 2009Q1

REPORT INFORMATION
  Report Type: 
  Country: None (occurrence: None)
  Receive Date: 20090311
  Receipt Date: 20090302
  Transmission Date: 20090719
  Serious: Yes (Other)
  Sender: FDA-Public Use
  Company Number: US-WYE-H08420609

PATIENT

DRUGS (3)
  1. PRISTIQ [Suspect]
  2. PRISTIQ [Interacting]
  3. ZITHROMAX [Interacting]
     Dosage: UNKNOWN

REACTIONS (2)
  - DRUG INTERACTION [None]
  - SEROTONIN SYNDROME [None]
